FAERS Safety Report 6120669-3 (Version None)
Quarter: 2009Q1

REPORT INFORMATION
  Report Type: 
  Country: None (occurrence: None)
  Receive Date: 20090312
  Receipt Date: 20090312
  Transmission Date: 20090719
  Serious: Yes (Hospitalization, Other)
  Sender: FDA-Public Use
  Company Number: None

PATIENT
  Sex: Female
  Weight: 68.0396 kg

DRUGS (1)
  1. ALENDRONATE SODIUM [Suspect]
     Indication: OSTEOPOROSIS
     Dosage: 70OMG. WEEKLY PO
     Route: 048
     Dates: start: 20001016, end: 20080916

REACTIONS (12)
  - DECREASED ACTIVITY [None]
  - DEPRESSION [None]
  - ECONOMIC PROBLEM [None]
  - FEMUR FRACTURE [None]
  - GAIT DISTURBANCE [None]
  - IMPAIRED DRIVING ABILITY [None]
  - INSOMNIA [None]
  - PAIN IN EXTREMITY [None]
  - UNEMPLOYMENT [None]
  - WALKING AID USER [None]
  - WEIGHT INCREASED [None]
  - WHEELCHAIR USER [None]
